FAERS Safety Report 15640329 (Version 2)
Quarter: 2018Q4

REPORT INFORMATION
  Report Type: Spontaneous
  Country: FR (occurrence: FR)
  Receive Date: 20181120
  Receipt Date: 20181228
  Transmission Date: 20190205
  Serious: Yes (Hospitalization)
  Sender: FDA-Public Use
  Company Number: FR-CELGENEUS-FRA-20181105656

PATIENT
  Age: 73 Year
  Sex: Female
  Weight: 64 kg

DRUGS (12)
  1. REVLIMID [Suspect]
     Active Substance: LENALIDOMIDE
     Indication: PLASMA CELL MYELOMA
     Route: 048
     Dates: start: 20160503, end: 20181108
  2. LEVOTHYROX [Concomitant]
     Active Substance: LEVOTHYROXINE
     Indication: HYPOTHYROIDISM
     Dosage: 75 MICROGRAM
     Route: 048
     Dates: start: 2010
  3. LYTOS [Concomitant]
     Active Substance: CLODRONATE DISODIUM
     Indication: PROPHYLAXIS
     Dosage: 1040 MILLIGRAM
     Route: 048
     Dates: start: 20160503
  4. PARACETAMOL [Concomitant]
     Active Substance: ACETAMINOPHEN
     Indication: BONE PAIN
     Route: 048
     Dates: start: 20170606
  5. MOVICOL [Concomitant]
     Active Substance: POLYETHYLENE GLYCOL 3350\POTASSIUM CHLORIDE\SODIUM BICARBONATE\SODIUM CHLORIDE
     Indication: GENITAL PROLAPSE
     Dosage: 2 DOSAGE FORMS
     Route: 048
     Dates: start: 20171104
  6. UVEDOSE [Concomitant]
     Active Substance: CHOLECALCIFEROL
     Indication: PROPHYLAXIS
     Dosage: 100000 IU (INTERNATIONAL UNIT)
     Route: 048
     Dates: start: 20170926
  7. ALDACTAZINE [Concomitant]
     Active Substance: ALTHIAZIDE\SPIRONOLACTONE
     Indication: HYPERTENSION
     Dosage: 25 MILLIGRAM
     Route: 048
     Dates: start: 2006
  8. BACTRIM [Concomitant]
     Active Substance: SULFAMETHOXAZOLE\TRIMETHOPRIM
     Indication: HYPERTENSION
     Dosage: 3 DOSAGE FORMS
     Route: 048
     Dates: start: 20160503
  9. DEXAMETHASONE ORAL [Suspect]
     Active Substance: DEXAMETHASONE
     Indication: PLASMA CELL MYELOMA
     Dosage: 40 MILLIGRAM
     Route: 048
     Dates: start: 20160503, end: 20171213
  10. ACTISKENAN [Concomitant]
     Active Substance: MORPHINE SULFATE
     Indication: BONE PAIN
     Route: 048
     Dates: start: 20160620
  11. PRAZEPAM [Concomitant]
     Active Substance: PRAZEPAM
     Indication: ANXIETY
     Route: 048
     Dates: start: 20160620
  12. ARIXTRA [Concomitant]
     Active Substance: FONDAPARINUX SODIUM
     Indication: DEEP VEIN THROMBOSIS
     Route: 048
     Dates: start: 20161220

REACTIONS (1)
  - Sepsis [Recovered/Resolved]

NARRATIVE: CASE EVENT DATE: 20181108
